FAERS Safety Report 4914078-X (Version None)
Quarter: 2006Q1

REPORT INFORMATION
  Report Type: 
  Country: None (occurrence: None)
  Receive Date: 20060210
  Receipt Date: 19991203
  Transmission Date: 20060701
  Serious: Yes (Congenital Anomaly)
  Sender: FDA-Public Use
  Company Number: A0107062A

PATIENT
  Sex: Female
  Weight: 2.6762 kg

DRUGS (5)
  1. LAMICTAL [Suspect]
     Indication: BIPOLAR DISORDER
     Dosage: 25 MG/ PER DAY/ TRANSPLACENTARY
     Route: 064
  2. LITHIUM SALT [Concomitant]
  3. PRENATAL VITAMINS [Concomitant]
  4. FOLIC ACID [Concomitant]
  5. TOBACCO [Concomitant]

REACTIONS (5)
  - CHOANAL ATRESIA [None]
  - CONGENITAL ANOMALY [None]
  - CONGENITAL HYPOTHYROIDISM [None]
  - DRUG EXPOSURE DURING PREGNANCY [None]
  - EAR CANAL STENOSIS [None]
